FAERS Safety Report 7775403-8 (Version None)
Quarter: 2011Q3

REPORT INFORMATION
  Report Type: 
  Country: None (occurrence: None)
  Receive Date: 20110923
  Receipt Date: 20110909
  Transmission Date: 20111222
  Serious: Yes (Other)
  Sender: FDA-Public Use
  Company Number: PHHY2011FR80238

PATIENT
  Sex: Female

DRUGS (8)
  1. OMEPRAZOLE [Concomitant]
  2. CRESTOR [Concomitant]
  3. LASIX [Concomitant]
  4. PLAVIX [Concomitant]
  5. ASPIRIN [Concomitant]
  6. RASILEZ [Suspect]
     Indication: HYPERTENSION
     Dosage: 1 DF, QD
     Route: 048
     Dates: start: 20101028, end: 20101115
  7. AMLODIPINE BESYLATE [Concomitant]
  8. RAMIPRIL [Concomitant]
     Dosage: 1 DF,

REACTIONS (2)
  - BLOOD PRESSURE INCREASED [None]
  - DRUG INEFFECTIVE [None]
